FAERS Safety Report 4490710-2 (Version None)
Quarter: 2004Q4

REPORT INFORMATION
  Report Type: 
  Country: None (occurrence: None)
  Receive Date: 20041102
  Receipt Date: 20041021
  Transmission Date: 20050328
  Serious: Yes (Hospitalization)
  Sender: FDA-Public Use
  Company Number: DE-ROCHE-383894

PATIENT
  Age: 46 Year
  Sex: Male

DRUGS (31)
  1. MYCOPHENOLATE MOFETIL [Suspect]
     Route: 048
     Dates: start: 20041009
  2. MYCOPHENOLATE MOFETIL [Suspect]
     Route: 048
     Dates: start: 20040927, end: 20040927
  3. MYCOPHENOLATE MOFETIL [Suspect]
     Route: 048
     Dates: start: 20040928, end: 20040928
  4. MYCOPHENOLATE MOFETIL [Suspect]
     Route: 048
     Dates: start: 20040929
  5. MYCOPHENOLATE MOFETIL [Suspect]
     Route: 048
     Dates: start: 20041002, end: 20041002
  6. MYCOPHENOLATE MOFETIL [Suspect]
     Route: 048
     Dates: start: 20041003
  7. MYCOPHENOLATE MOFETIL [Suspect]
     Route: 048
     Dates: start: 20041005
  8. MYCOPHENOLATE MOFETIL [Suspect]
     Route: 048
     Dates: start: 20041007, end: 20041008
  9. DACLIZUMAB [Suspect]
     Route: 042
     Dates: start: 20041011, end: 20041011
  10. DACLIZUMAB [Suspect]
     Route: 042
     Dates: start: 20040927, end: 20040927
  11. SIROLIMUS [Suspect]
     Route: 048
     Dates: start: 20040930
  12. SIROLIMUS [Suspect]
     Route: 048
     Dates: start: 20040927, end: 20040927
  13. SIROLIMUS [Suspect]
     Route: 048
     Dates: start: 20040928
  14. PREDNISOLONE [Suspect]
     Route: 042
     Dates: start: 20041008
  15. PREDNISOLONE [Suspect]
     Route: 042
     Dates: start: 20040927, end: 20040927
  16. PREDNISOLONE [Suspect]
     Route: 042
     Dates: start: 20040928
  17. PREDNISOLONE [Suspect]
     Route: 042
     Dates: start: 20040930, end: 20041002
  18. PREDNISOLONE [Suspect]
     Route: 042
     Dates: start: 20041003
  19. PREDNISOLONE [Suspect]
     Route: 042
     Dates: start: 20041006, end: 20041006
  20. PREDNISOLONE [Suspect]
     Route: 042
     Dates: start: 20041007, end: 20041007
  21. PREDNISOLONE [Suspect]
     Route: 042
     Dates: start: 20041015
  22. ACETYLCYSTEINE [Concomitant]
     Dates: start: 20041001
  23. AMLODIPIN [Concomitant]
     Dates: start: 20040930
  24. AMPHOTERICIN B [Concomitant]
     Dates: start: 20040928
  25. CLONIDIN [Concomitant]
     Dates: start: 20041006
  26. DIHYDRALAZIN [Concomitant]
     Dates: start: 20040930
  27. FUROSEMIDE [Concomitant]
     Dosage: STOPPED ON 02 OCTOBER 2004 AND RESTARTED ON 03 OCTOBER 2004.
     Dates: start: 20040901
  28. LEVOFLOXACIN [Concomitant]
     Dates: start: 20041001
  29. LORAZEPAM [Concomitant]
     Dates: start: 20040930
  30. RAMIPRIL [Concomitant]
     Dates: start: 20041003
  31. URAPIDIL [Concomitant]
     Dates: start: 20040928

REACTIONS (2)
  - LYMPHOCELE [None]
  - WOUND SECRETION [None]
